FAERS Safety Report 4836191-8 (Version None)
Quarter: 2005Q4

REPORT INFORMATION
  Report Type: 
  Country: None (occurrence: None)
  Receive Date: 20051121
  Receipt Date: 20051121
  Transmission Date: 20060501
  Serious: Yes (Life-Threatening, Hospitalization)
  Sender: FDA-Public Use
  Company Number: None

PATIENT
  Sex: Male
  Weight: 130 kg

DRUGS (3)
  1. FLUDARABINE [Suspect]
     Indication: CHRONIC LYMPHOCYTIC LEUKAEMIA
     Dosage: 76 MG    DAILY    IV DRIP
     Route: 041
     Dates: start: 20051013, end: 20051017
  2. MELPHALAN [Suspect]
     Dosage: 355 MG    ONCE    IV DRIP
     Route: 041
     Dates: start: 20051018, end: 20051018
  3. CAMPATH [Concomitant]

REACTIONS (5)
  - ASTHENIA [None]
  - DIARRHOEA [None]
  - NAUSEA [None]
  - STAPHYLOCOCCAL BACTERAEMIA [None]
  - VOMITING [None]
